FAERS Safety Report 11090915 (Version 1)
Quarter: 2015Q2

REPORT INFORMATION
  Report Type: Spontaneous
  Country: US (occurrence: US)
  Receive Date: 20150505
  Receipt Date: 20150505
  Transmission Date: 20150821
  Serious: No
  Sender: FDA-Public Use
  Company Number: US-PFIZER INC-2015148035

PATIENT
  Sex: Female

DRUGS (1)
  1. BENZFETAMINE HCL [Suspect]
     Active Substance: BENZPHETAMINE HYDROCHLORIDE

REACTIONS (1)
  - Drug effect variable [Unknown]
